FAERS Safety Report 4798270-3 (Version None)
Quarter: 2005Q4

REPORT INFORMATION
  Report Type: 
  Country: None (occurrence: None)
  Receive Date: 20051014
  Receipt Date: 20051006
  Transmission Date: 20060501
  Serious: Yes (Other)
  Sender: FDA-Public Use
  Company Number: PHBS2005CL14755

PATIENT
  Age: 63 Year
  Sex: Male

DRUGS (2)
  1. TAREG D [Suspect]
     Dosage: VALS 160 / HCT 12.5 MG/DAY
     Route: 048
  2. DILATREND [Concomitant]

REACTIONS (1)
  - MYOCARDIAL INFARCTION [None]
